FAERS Safety Report 8780771 (Version 1)
Quarter: 2012Q4

REPORT INFORMATION
  Report Type: 
  Country: AR (occurrence: AR)
  Receive Date: 20120913
  Receipt Date: 20120913
  Transmission Date: 20130627
  Serious: Yes (Other)
  Sender: FDA-Public Use
  Company Number: AR-AMGEN-ARGSP2012057608

PATIENT
  Age: 67 Year
  Sex: Female

DRUGS (3)
  1. ENBREL [Suspect]
     Indication: RHEUMATOID ARTHRITIS
     Dosage: 50 mg, weekly
     Route: 058
     Dates: start: 20061219, end: 201110
  2. OXA 75 RAPILENT [Concomitant]
     Dosage: UNK
  3. LANZOPRAL [Concomitant]
     Dosage: UNK

REACTIONS (8)
  - Diabetes mellitus [Unknown]
  - Hepatic enzyme increased [Recovered/Resolved]
  - Hypertension [Recovered/Resolved]
  - Hypercholesterolaemia [Recovered/Resolved]
  - Hyperglycaemia [Recovered/Resolved]
  - Blister [Not Recovered/Not Resolved]
  - Gait disturbance [Not Recovered/Not Resolved]
  - Liver disorder [Unknown]
